FAERS Safety Report 18213237 (Version 1)
Quarter: 2020Q3

REPORT INFORMATION
  Report Type: Spontaneous
  Country: US (occurrence: US)
  Receive Date: 20200830
  Receipt Date: 20200830
  Transmission Date: 20201103
  Serious: Yes (Disabling)
  Sender: FDA-Public Use
  Company Number: None

PATIENT
  Age: 27 Year
  Sex: Female
  Weight: 57.15 kg

DRUGS (6)
  1. SYNTHROID [Suspect]
     Active Substance: LEVOTHYROXINE SODIUM
  2. LEVOTHYROXINE. [Suspect]
     Active Substance: LEVOTHYROXINE
     Indication: AUTOIMMUNE THYROIDITIS
     Dates: start: 20171117, end: 20200305
  3. MIRENA [Concomitant]
     Active Substance: LEVONORGESTREL
  4. ESTRACE PATCH [Concomitant]
  5. PEPCID [Concomitant]
     Active Substance: FAMOTIDINE
  6. ZYRTEC [Concomitant]
     Active Substance: CETIRIZINE HYDROCHLORIDE

REACTIONS (14)
  - Palpitations [None]
  - Anxiety [None]
  - Impaired work ability [None]
  - Thyroid hormones increased [None]
  - Terminal insomnia [None]
  - Vomiting [None]
  - Nervousness [None]
  - Decreased appetite [None]
  - Eating disorder [None]
  - Weight decreased [None]
  - Hyperhidrosis [None]
  - Diarrhoea [None]
  - Superior mesenteric artery syndrome [None]
  - Quality of life decreased [None]

NARRATIVE: CASE EVENT DATE: 20171130
